FAERS Safety Report 7305423-9 (Version None)
Quarter: 2011Q1

REPORT INFORMATION
  Report Type: 
  Country: None (occurrence: None)
  Receive Date: 20110222
  Receipt Date: 20110217
  Transmission Date: 20110831
  Serious: Yes (Other)
  Sender: FDA-Public Use
  Company Number: JP-PFIZER INC-2011035856

PATIENT
  Age: 78 Year
  Sex: Female

DRUGS (14)
  1. CONSTAN [Concomitant]
     Dosage: 0.4 MG, 3X/DAY
  2. GASMOTIN [Concomitant]
     Dosage: 5 MG, 3X/DAY
  3. SENNOSIDES [Concomitant]
     Dosage: UNK
  4. VOGLIBOSE [Concomitant]
     Dosage: UNK
  5. LYRICA [Suspect]
     Indication: BACK PAIN
     Dosage: 50 MG, 2X/DAY
     Dates: start: 20101122, end: 20110205
  6. TAKEPRON [Concomitant]
     Dosage: 15 MG, 1X/DAY
  7. BLOPRESS [Concomitant]
     Dosage: UNK
  8. AMOXAN [Concomitant]
     Dosage: 25 MG, 3X/DAY
  9. AMOBAN [Concomitant]
     Dosage: 10 MG, 1X/DAY
  10. LENDORMIN [Concomitant]
     Dosage: 0.25 MG, UNK
  11. DAIOKANZOTO [Concomitant]
     Dosage: UNK
  12. MEILAX [Concomitant]
     Dosage: 1 MG, 1X/DAY
  13. TETRAMIDE [Concomitant]
     Dosage: UNK
  14. MIRTAZAPINE [Concomitant]
     Dosage: 10 MG, 1X/DAY

REACTIONS (3)
  - DEMENTIA ALZHEIMER'S TYPE [None]
  - DIZZINESS [None]
  - SOMNOLENCE [None]
